FAERS Safety Report 6300236-9 (Version None)
Quarter: 2009Q3

REPORT INFORMATION
  Report Type: 
  Country: None (occurrence: None)
  Receive Date: 20090803
  Receipt Date: 20090722
  Transmission Date: 20100115
  Serious: Yes (Hospitalization)
  Sender: FDA-Public Use
  Company Number: PAR_02402_2008

PATIENT
  Sex: Male
  Weight: 70 kg

DRUGS (4)
  1. IBUPROFEN [Suspect]
     Indication: BACK PAIN
     Dosage: 800 MG ORAL
     Route: 048
     Dates: start: 20070101, end: 20070101
  2. HUMALOG [Concomitant]
  3. HUMINSULIN BASAL [Concomitant]
  4. ASPIRIN [Concomitant]

REACTIONS (7)
  - ABDOMINAL PAIN [None]
  - AUTOIMMUNE HEPATITIS [None]
  - GENERAL PHYSICAL HEALTH DETERIORATION [None]
  - HEPATIC STEATOSIS [None]
  - HEPATITIS ACUTE [None]
  - HYPERGLYCAEMIA [None]
  - VOMITING [None]
